FAERS Safety Report 19714315 (Version 1)
Quarter: 2021Q3

REPORT INFORMATION
  Report Type: Spontaneous
  Country: US (occurrence: US)
  Receive Date: 20210817
  Receipt Date: 20210817
  Transmission Date: 20211014
  Serious: Yes (Death, Hospitalization)
  Sender: FDA-Public Use
  Company Number: None

PATIENT
  Age: 12 Year
  Sex: Male
  Weight: 87.1 kg

DRUGS (6)
  1. PREDNISOLONE. [Suspect]
     Active Substance: PREDNISOLONE
     Dates: end: 20210619
  2. METHOTREXATE. [Suspect]
     Active Substance: METHOTREXATE
     Dates: end: 20210612
  3. ONCASPAR [Suspect]
     Active Substance: PEGASPARGASE
  4. DAUNORUBICIN [Suspect]
     Active Substance: DAUNORUBICIN
     Dates: end: 20210618
  5. CYTARABINE. [Suspect]
     Active Substance: CYTARABINE
     Dates: end: 20210614
  6. VINCRISTINE SULFATE. [Suspect]
     Active Substance: VINCRISTINE SULFATE
     Dates: end: 20210618

REACTIONS (16)
  - Enterovirus infection [None]
  - Thrombocytopenia [None]
  - Respiratory failure [None]
  - Hyperbilirubinaemia [None]
  - Ascites [None]
  - Fungal sepsis [None]
  - Escherichia bacteraemia [None]
  - Rhinovirus infection [None]
  - Candida infection [None]
  - Disease complication [None]
  - Venoocclusive liver disease [None]
  - Multi-organ disorder [None]
  - Transaminases increased [None]
  - Systemic candida [None]
  - Metabolic encephalopathy [None]
  - Adenovirus infection [None]

NARRATIVE: CASE EVENT DATE: 20210620
